FAERS Safety Report 7795868-5 (Version None)
Quarter: 2011Q4

REPORT INFORMATION
  Report Type: 
  Country: None (occurrence: None)
  Receive Date: 20111004
  Receipt Date: 20110926
  Transmission Date: 20120403
  Serious: Yes (Hospitalization, Other)
  Sender: FDA-Public Use
  Company Number: JP-JNJFOC-20101201033

PATIENT
  Sex: Male
  Weight: 61 kg

DRUGS (8)
  1. PENTASA [Concomitant]
     Indication: CROHN'S DISEASE
     Route: 048
     Dates: start: 20050601
  2. OMEPRAZOLE [Concomitant]
     Indication: GASTROOESOPHAGEAL REFLUX DISEASE
     Route: 048
     Dates: start: 20071001
  3. REMICADE [Suspect]
     Route: 042
     Dates: start: 20071205
  4. AMLODIPINE [Concomitant]
     Indication: HYPERTENSION
     Route: 048
     Dates: start: 20100112
  5. REMICADE [Suspect]
     Indication: CROHN'S DISEASE
     Route: 042
     Dates: start: 20071105
  6. REMICADE [Suspect]
     Route: 042
     Dates: start: 20101028
  7. PREDNISOLONE [Concomitant]
     Indication: CROHN'S DISEASE
     Route: 048
     Dates: start: 20071001
  8. REMICADE [Suspect]
     Route: 042
     Dates: start: 20100831

REACTIONS (2)
  - INTERSTITIAL LUNG DISEASE [None]
  - MELAENA [None]
